FAERS Safety Report 25766996 (Version 1)
Quarter: 2025Q3

REPORT INFORMATION
  Report Type: Spontaneous
  Country: US (occurrence: US)
  Receive Date: 20250905
  Receipt Date: 20250905
  Transmission Date: 20251021
  Serious: Yes (Life-Threatening, Hospitalization, Other)
  Sender: ASCENT PHARMACEUTICALS INC
  Company Number: US-ASCENT-2025ASLIT00204

PATIENT
  Age: 35 Year
  Sex: Female

DRUGS (7)
  1. BENZONATATE [Suspect]
     Active Substance: BENZONATATE
     Indication: Product used for unknown indication
     Route: 048
  2. TOPIRAMATE [Suspect]
     Active Substance: TOPIRAMATE
     Indication: Product used for unknown indication
     Route: 048
  3. GABAPENTIN [Suspect]
     Active Substance: GABAPENTIN
     Indication: Product used for unknown indication
     Route: 048
  4. LAMOTRIGINE [Suspect]
     Active Substance: LAMOTRIGINE
     Indication: Product used for unknown indication
     Route: 048
  5. QUETIAPINE [Suspect]
     Active Substance: QUETIAPINE
     Indication: Product used for unknown indication
     Route: 048
  6. MONTELUKAST [Suspect]
     Active Substance: MONTELUKAST
     Indication: Product used for unknown indication
     Route: 048
  7. OMEPRAZOLE [Suspect]
     Active Substance: OMEPRAZOLE
     Indication: Product used for unknown indication
     Route: 048

REACTIONS (3)
  - Electrocardiogram QT prolonged [Unknown]
  - Intentional product use issue [Unknown]
  - Toxicity to various agents [Unknown]
